FAERS Safety Report 7958380-6 (Version None)
Quarter: 2011Q4

REPORT INFORMATION
  Report Type: 
  Country: None (occurrence: None)
  Receive Date: 20111205
  Receipt Date: 20111201
  Transmission Date: 20120403
  Serious: Yes (Hospitalization)
  Sender: FDA-Public Use
  Company Number: DE-MERCK-1112DEU00003

PATIENT
  Age: 72 Year
  Sex: Female

DRUGS (3)
  1. HYZAAR [Suspect]
     Route: 048
     Dates: start: 19960101
  2. COZAAR [Suspect]
     Route: 048
     Dates: start: 19960101
  3. ASPIRIN [Concomitant]
     Route: 065

REACTIONS (2)
  - COUGH [None]
  - CARDIAC VALVE DISEASE [None]
